FAERS Safety Report 11615211 (Version 4)
Quarter: 2015Q4

REPORT INFORMATION
  Report Type: Spontaneous
  Country: JP (occurrence: JP)
  Receive Date: 20151009
  Receipt Date: 20151106
  Transmission Date: 20160304
  Serious: Yes (Disabling, Other)
  Sender: FDA-Public Use
  Company Number: PHJP2015JP017483

PATIENT
  Age: 81 Year
  Sex: Male
  Weight: 46 kg

DRUGS (10)
  1. GLIVEC [Suspect]
     Active Substance: IMATINIB MESYLATE
     Indication: GASTROINTESTINAL STROMAL TUMOUR
     Dosage: 200 MG, UNK
     Route: 048
     Dates: start: 20120712, end: 20120816
  2. GLIVEC [Suspect]
     Active Substance: IMATINIB MESYLATE
     Dosage: 200 MG, UNK
     Route: 048
     Dates: start: 20121101, end: 20130110
  3. GLIVEC [Suspect]
     Active Substance: IMATINIB MESYLATE
     Dosage: 200 MG, UNK
     Route: 048
     Dates: start: 20130627, end: 20130808
  4. REZALTAS [Concomitant]
     Active Substance: AZELNIDIPINE\OLMESARTAN MEDOXOMIL
     Indication: HYPERTENSION
     Dosage: 1 DF, UNK
     Route: 048
  5. GLIVEC [Suspect]
     Active Substance: IMATINIB MESYLATE
     Dosage: 200 MG, UNK
     Route: 048
     Dates: start: 20131205, end: 20140206
  6. GLIVEC [Suspect]
     Active Substance: IMATINIB MESYLATE
     Dosage: 200 MG, UNK
     Route: 048
     Dates: start: 20130328, end: 20130606
  7. GLIVEC [Suspect]
     Active Substance: IMATINIB MESYLATE
     Dosage: 200 MG, UNK
     Route: 048
     Dates: start: 20120830, end: 20121004
  8. GLIVEC [Suspect]
     Active Substance: IMATINIB MESYLATE
     Dosage: 200 MG, UNK
     Route: 048
     Dates: start: 20130829, end: 20131107
  9. ADALAT [Concomitant]
     Active Substance: NIFEDIPINE
     Indication: HYPERTENSION
     Dosage: UNK
     Route: 065
     Dates: start: 20140410
  10. GLIVEC [Suspect]
     Active Substance: IMATINIB MESYLATE
     Dosage: 200 MG, UNK
     Route: 048
     Dates: start: 20130124, end: 20130314

REACTIONS (8)
  - Hypertension [Unknown]
  - Anaemia [Unknown]
  - Thrombotic microangiopathy [Recovered/Resolved with Sequelae]
  - Generalised oedema [Recovered/Resolved]
  - Condition aggravated [Recovered/Resolved]
  - Nephrotic syndrome [Recovered/Resolved]
  - Weight decreased [Unknown]
  - Platelet count decreased [Recovered/Resolved]

NARRATIVE: CASE EVENT DATE: 20120816
